FAERS Safety Report 16990412 (Version 1)
Quarter: 2019Q4

REPORT INFORMATION
  Report Type: Spontaneous
  Country: US (occurrence: US)
  Receive Date: 20191103
  Receipt Date: 20191103
  Transmission Date: 20200122
  Serious: Yes (Hospitalization)
  Sender: FDA-Public Use
  Company Number: None

PATIENT
  Age: 40 Year
  Sex: Male
  Weight: 145.35 kg

DRUGS (3)
  1. JANUVIA 100 MG DAILY [Concomitant]
  2. JARDIANCE [Suspect]
     Active Substance: EMPAGLIFLOZIN
     Indication: TYPE 2 DIABETES MELLITUS
     Route: 048
     Dates: start: 20190408, end: 20190831
  3. METFORMIN 1000 MG BID [Concomitant]

REACTIONS (4)
  - Culture urine positive [None]
  - Proteus test positive [None]
  - Urosepsis [None]
  - Fungal infection [None]

NARRATIVE: CASE EVENT DATE: 20190831
